FAERS Safety Report 5279814-4 (Version None)
Quarter: 2007Q1

REPORT INFORMATION
  Report Type: 
  Country: None (occurrence: None)
  Receive Date: 20070327
  Receipt Date: 20070327
  Transmission Date: 20070707
  Serious: Yes (Death, Hospitalization)
  Sender: FDA-Public Use
  Company Number: None

PATIENT
  Sex: Male
  Weight: 71.5 kg

DRUGS (8)
  1. ENOXAPARIN SODIUM [Suspect]
     Indication: DEEP VEIN THROMBOSIS
     Dosage: 80MG Q12H (SC)
     Route: 058
     Dates: start: 20060310, end: 20060320
  2. ENOXAPARIN SODIUM [Suspect]
     Indication: DEEP VEIN THROMBOSIS
     Dosage: 80MG Q12H (SC)
     Route: 058
     Dates: start: 20060416, end: 20060419
  3. SALSALATE 500MG [Suspect]
     Indication: INFLAMMATION
     Dosage: 1000MG BID (PO)
     Route: 048
     Dates: start: 20051201
  4. SALSALATE 500MG [Suspect]
     Indication: PAIN
     Dosage: 1000MG BID (PO)
     Route: 048
     Dates: start: 20051201
  5. WARFARIN SODIUM [Concomitant]
  6. ACETAMINOPHEN [Concomitant]
  7. OLANZAPINE [Concomitant]
  8. PAROXETINE [Concomitant]

REACTIONS (3)
  - DUODENAL ULCER [None]
  - LEIOMYOSARCOMA [None]
  - UPPER GASTROINTESTINAL HAEMORRHAGE [None]
